FAERS Safety Report 11395505 (Version 1)
Quarter: 2015Q3

REPORT INFORMATION
  Report Type: Spontaneous
  Country: US (occurrence: None)
  Receive Date: 20150818
  Receipt Date: 20150818
  Transmission Date: 20151125
  Serious: Yes (Death)
  Sender: FDA-Public Use
  Company Number: None

PATIENT
  Age: 85 Year
  Sex: Male
  Weight: 81.65 kg

DRUGS (11)
  1. TRIPLIX [Concomitant]
     Active Substance: FENOFIBRIC ACID
  2. CENTRUM SILVER VITAMIN [Concomitant]
  3. TRAMADOL. [Concomitant]
     Active Substance: TRAMADOL
  4. PLAVIX [Concomitant]
     Active Substance: CLOPIDOGREL BISULFATE
  5. ISORSORBIDE MONONITRATE EXTENDED-RELEASE [Concomitant]
     Active Substance: ISOSORBIDE MONONITRATE
  6. XARELTO [Suspect]
     Active Substance: RIVAROXABAN
     Indication: THROMBOSIS
     Dosage: N/A, TWICE DAILY, TAKEN BY MOUTH
     Route: 048
     Dates: start: 20140307, end: 20140408
  7. LOSARTAN. [Concomitant]
     Active Substance: LOSARTAN
  8. LIPITOR [Concomitant]
     Active Substance: ATORVASTATIN CALCIUM
  9. ASPIRIN. [Concomitant]
     Active Substance: ASPIRIN
  10. XARELTO [Suspect]
     Active Substance: RIVAROXABAN
     Indication: DRUG THERAPY
     Dosage: N/A, TWICE DAILY, TAKEN BY MOUTH
     Route: 048
     Dates: start: 20140307, end: 20140408
  11. METOPROTOL [Concomitant]

REACTIONS (2)
  - Cardiac arrest [None]
  - Intracardiac thrombus [None]

NARRATIVE: CASE EVENT DATE: 20140410
